FAERS Safety Report 10684066 (Version 2)
Quarter: 2015Q1

REPORT INFORMATION
  Report Type: Report from Study
  Country: KR (occurrence: KR)
  Receive Date: 20141230
  Receipt Date: 20150224
  Transmission Date: 20150720
  Serious: Yes (Death)
  Sender: FDA-Public Use
  Company Number: KR-MYLANLABS-2014M1015713

PATIENT

DRUGS (2)
  1. IMIPENEM AND CILASTATIN [Suspect]
     Active Substance: CILASTATIN SODIUM\IMIPENEM
     Indication: RAOULTELLA ORNITHINOLYTICA INFECTION
     Route: 065
  2. VANCOMYCIN HYDROCHLORIDE. [Suspect]
     Active Substance: VANCOMYCIN HYDROCHLORIDE
     Indication: RAOULTELLA ORNITHINOLYTICA INFECTION
     Route: 065

REACTIONS (2)
  - Treatment failure [Fatal]
  - Raoultella ornithinolytica infection [Fatal]
